FAERS Safety Report 5397881-4 (Version None)
Quarter: 2007Q3

REPORT INFORMATION
  Report Type: 
  Country: None (occurrence: None)
  Receive Date: 20070723
  Receipt Date: 20070723
  Transmission Date: 20080115
  Serious: Yes (Other)
  Sender: FDA-Public Use
  Company Number: None

PATIENT
  Age: 25 Year
  Sex: Female
  Weight: 106.5953 kg

DRUGS (22)
  1. VENTOLIN [Suspect]
     Indication: ASTHMA
     Dosage: 2 INHALATIONS EVERY 4-6 HOURS PO
     Route: 048
     Dates: start: 20070710, end: 20070719
  2. VENTOLIN [Suspect]
     Indication: BRONCHITIS CHRONIC
     Dosage: 2 INHALATIONS EVERY 4-6 HOURS PO
     Route: 048
     Dates: start: 20070710, end: 20070719
  3. ATROVENT [Concomitant]
  4. INTAL [Concomitant]
  5. ADVAIR DISKUS 100/50 [Concomitant]
  6. SPIRIVA [Concomitant]
  7. XOPENEX-ALTERNATIVE TO ALBUTEROL [Concomitant]
  8. AMIBID DM [Concomitant]
  9. TOPAMAX [Concomitant]
  10. SUDAFED 12 HOUR [Concomitant]
  11. ALLEGRA [Concomitant]
  12. SINGULAIR [Concomitant]
  13. BACTRIM [Concomitant]
  14. PHENERGAN/CODEINE SYRUP [Concomitant]
  15. HYCODAN [Concomitant]
  16. VICOPROFEN [Concomitant]
  17. ELIDEL [Concomitant]
  18. ATARAX [Concomitant]
  19. ANIVERT [Concomitant]
  20. TRANSDERM SCOP [Concomitant]
  21. ZOFRAN [Concomitant]
  22. RESTORIL [Concomitant]

REACTIONS (5)
  - CHEST PAIN [None]
  - DRUG EFFECT DECREASED [None]
  - DYSPNOEA [None]
  - PALPITATIONS [None]
  - THERAPEUTIC RESPONSE UNEXPECTED WITH DRUG SUBSTITUTION [None]
